FAERS Safety Report 8986989 (Version 1)
Quarter: 2012Q4

REPORT INFORMATION
  Report Type: 
  Country: US (occurrence: US)
  Receive Date: 20121227
  Receipt Date: 20121227
  Transmission Date: 20130627
  Serious: No
  Sender: FDA-Public Use
  Company Number: US-009507513-1212USA010115

PATIENT
  Age: 56 Year
  Sex: Male
  Weight: 90.7 kg

DRUGS (9)
  1. VICTRELIS [Suspect]
     Indication: HEPATITIS C
     Dosage: 800 mg, tid (every 7-9 hours)
     Route: 048
  2. PEGASYS [Suspect]
     Indication: HEPATITIS C
     Route: 058
  3. RIBASPHERE [Suspect]
     Indication: HEPATITIS C
     Dosage: 200 mg, UNK
     Route: 048
  4. AMLODIPINE [Concomitant]
     Dosage: 10 mg, UNK
     Route: 048
  5. BENICAR [Concomitant]
     Dosage: 20 mg, UNK
     Route: 048
  6. GLIMEPRID [Concomitant]
     Dosage: 1 mg, UNK
     Route: 048
  7. PRILOSEC [Concomitant]
     Dosage: 20 mg, UNK
     Route: 048
  8. CIALIS [Concomitant]
     Dosage: 20 mg, UNK
     Route: 048
  9. GLIPIZIDE [Concomitant]
     Dosage: 5 mg, UNK
     Route: 048

REACTIONS (6)
  - Fatigue [Unknown]
  - Dysgeusia [Unknown]
  - Chills [Unknown]
  - Decreased appetite [Unknown]
  - Nausea [Unknown]
  - Vomiting [Unknown]
